FAERS Safety Report 10048456 (Version 1)
Quarter: 2014Q1

REPORT INFORMATION
  Report Type: Spontaneous
  Country: US (occurrence: US)
  Receive Date: 20140331
  Receipt Date: 20140331
  Transmission Date: 20141002
  Serious: Yes (Other)
  Sender: FDA-Public Use
  Company Number: US-PFIZER INC-2014087547

PATIENT
  Age: 64 Year
  Sex: Male
  Weight: 117.91 kg

DRUGS (1)
  1. DETROL [Suspect]
     Indication: HYPERTONIC BLADDER
     Dosage: 2 MG, 2X/DAY
     Route: 048

REACTIONS (5)
  - Postoperative thrombosis [Unknown]
  - Post procedural infection [Unknown]
  - Musculoskeletal discomfort [Unknown]
  - Device failure [Unknown]
  - Post procedural complication [Unknown]
